FAERS Safety Report 19417834 (Version 1)
Quarter: 2021Q2

REPORT INFORMATION
  Report Type: Spontaneous
  Country: US (occurrence: US)
  Receive Date: 20210615
  Receipt Date: 20210615
  Transmission Date: 20210717
  Serious: No
  Sender: FDA-Public Use
  Company Number: None

PATIENT
  Age: 36 Year
  Sex: Female
  Weight: 64.8 kg

DRUGS (5)
  1. FOLLISTIM [Concomitant]
     Active Substance: FOLLITROPIN
  2. PRENATAL [Concomitant]
     Active Substance: VITAMINS
  3. ADDERALL XR [Concomitant]
     Active Substance: AMPHETAMINE ASPARTATE\AMPHETAMINE SULFATE\DEXTROAMPHETAMINE SACCHARATE\DEXTROAMPHETAMINE SULFATE
  4. GANIRELIX AC INJ 250/0.5 [Suspect]
     Active Substance: GANIRELIX ACETATE
     Indication: IN VITRO FERTILISATION
     Dates: start: 20210605, end: 20210611
  5. MENOPUR [Concomitant]
     Active Substance: FOLLITROPIN\LUTEINIZING HORMONE

REACTIONS (4)
  - Injection site pain [None]
  - Needle issue [None]
  - Device malfunction [None]
  - Injection site haemorrhage [None]

NARRATIVE: CASE EVENT DATE: 20210605
